FAERS Safety Report 7450265-7 (Version None)
Quarter: 2011Q2

REPORT INFORMATION
  Report Type: 
  Country: None (occurrence: None)
  Receive Date: 20110422
  Receipt Date: 20110415
  Transmission Date: 20111010
  Serious: Yes (Hospitalization, Other)
  Sender: FDA-Public Use
  Company Number: AXC-2011-000117

PATIENT
  Age: 8 Year
  Sex: Female

DRUGS (11)
  1. MERCAPTOPURINE [Suspect]
     Indication: POUCHITIS
     Dosage: 1.5 MG/KG, QD,
  2. MESALAMINE [Suspect]
     Dosage: RECTAL
     Route: 054
  3. AZATHIOPRINE [Suspect]
     Indication: COLITIS ULCERATIVE
  4. AZATHIOPRINE [Suspect]
     Indication: ABDOMINAL PAIN
  5. SULFASALAZINE [Suspect]
     Indication: ABDOMINAL PAIN
  6. SULFASALAZINE [Suspect]
     Indication: COLITIS ULCERATIVE
  7. PROBIOTIC FORMULATION (VSL NO. 3) UNKNOWN [Suspect]
     Indication: POUCHITIS
  8. MESALAMINE [Suspect]
     Indication: ABDOMINAL PAIN
     Dosage: ORAL
     Route: 048
  9. LOPERAMIDE [Suspect]
     Indication: ABDOMINAL PAIN
  10. LOPERAMIDE [Suspect]
     Indication: COLITIS ULCERATIVE
  11. CORTICOSTEROIDS UNKNOWN [Suspect]

REACTIONS (2)
  - POUCHITIS [None]
  - CONDITION AGGRAVATED [None]
